FAERS Safety Report 7239239-9 (Version None)
Quarter: 2011Q1

REPORT INFORMATION
  Report Type: 
  Country: None (occurrence: None)
  Receive Date: 20110121
  Receipt Date: 20110117
  Transmission Date: 20110831
  Serious: Yes (Death)
  Sender: FDA-Public Use
  Company Number: US-ASTRAZENECA-2011SE02903

PATIENT
  Age: 84 Year
  Sex: Female

DRUGS (3)
  1. SYMBICORT [Suspect]
     Dosage: 160/4.5 MCG ONE PUFF TWICE DAILY
     Route: 055
  2. NEXIUM [Suspect]
     Route: 048
  3. TOPROL-XL [Suspect]
     Route: 048

REACTIONS (1)
  - ANEURYSM [None]
